FAERS Safety Report 8320057-5 (Version None)
Quarter: 2012Q2

REPORT INFORMATION
  Report Type: 
  Country: None (occurrence: None)
  Receive Date: 20120427
  Receipt Date: 20120417
  Transmission Date: 20120825
  Serious: Yes (Hospitalization)
  Sender: FDA-Public Use
  Company Number: CHPA2012US009369

PATIENT
  Age: 57 Year
  Sex: Female

DRUGS (3)
  1. PROTONIX [Concomitant]
  2. PREVACID 24 HR [Suspect]
     Dosage: 30 MG, QD
     Route: 048
  3. PREVACID 24 HR [Suspect]
     Indication: GASTROOESOPHAGEAL REFLUX DISEASE
     Dosage: 60 MG, QD
     Route: 048
     Dates: start: 20100101

REACTIONS (8)
  - DISEASE RECURRENCE [None]
  - DRUG INEFFECTIVE FOR UNAPPROVED INDICATION [None]
  - JOINT INJURY [None]
  - MOBILITY DECREASED [None]
  - INCORRECT DRUG ADMINISTRATION DURATION [None]
  - OVERDOSE [None]
  - MENISCUS LESION [None]
  - FALL [None]
